FAERS Safety Report 12179672 (Version 2)
Quarter: 2016Q2

REPORT INFORMATION
  Report Type: Spontaneous
  Country: US (occurrence: US)
  Receive Date: 20160315
  Receipt Date: 20160408
  Transmission Date: 20160815
  Serious: Yes (Other)
  Sender: FDA-Public Use
  Company Number: US-ACTAVIS-2016-05659

PATIENT
  Age: 71 Year
  Sex: Female

DRUGS (2)
  1. VALSARTAN (WATSON LABORATORIES) [Suspect]
     Active Substance: VALSARTAN
     Indication: PRODUCT USED FOR UNKNOWN INDICATION
     Dosage: UNK
     Route: 065
  2. TETRACYCLINE [Concomitant]
     Active Substance: TETRACYCLINE
     Indication: SMALL INTESTINAL BACTERIAL OVERGROWTH
     Dosage: UNK
     Route: 065

REACTIONS (1)
  - Malabsorption [Recovered/Resolved]
